FAERS Safety Report 18870978 (Version 1)
Quarter: 2021Q1

REPORT INFORMATION
  Report Type: Spontaneous
  Country: US (occurrence: US)
  Receive Date: 20210208
  Receipt Date: 20210208
  Transmission Date: 20210420
  Serious: Yes (Disabling, Other)
  Sender: FDA-Public Use
  Company Number: None

PATIENT
  Age: 15 Year
  Sex: Male
  Weight: 63 kg

DRUGS (4)
  1. ALBUTEROL. [Concomitant]
     Active Substance: ALBUTEROL
  2. PULMICORT TURBUHALER [Concomitant]
     Active Substance: BUDESONIDE
  3. PROAIR INHALER [Concomitant]
     Active Substance: ALBUTEROL SULFATE
  4. SINGULAIR [Suspect]
     Active Substance: MONTELUKAST SODIUM
     Indication: ASTHMA
     Route: 048
     Dates: start: 20190416, end: 20190513

REACTIONS (5)
  - Sinusitis [None]
  - Obsessive-compulsive disorder [None]
  - Withdrawal syndrome [None]
  - Educational problem [None]
  - Dysphemia [None]

NARRATIVE: CASE EVENT DATE: 20210129
